FAERS Safety Report 4653874-3 (Version None)
Quarter: 2005Q2

REPORT INFORMATION
  Report Type: 
  Country: None (occurrence: None)
  Receive Date: 20050408
  Receipt Date: 20050110
  Transmission Date: 20051028
  Serious: No
  Sender: FDA-Public Use
  Company Number: 230098K05USA

PATIENT
  Age: 58 Year
  Sex: Male

DRUGS (2)
  1. REBIF [Suspect]
     Indication: MULTIPLE SCLEROSIS
     Dosage: 8.8 MCG, 3 IN 1 WEEKS, SUBCUTANEOUS
     Route: 058
     Dates: start: 20050103
  2. BACLOFEN [Concomitant]

REACTIONS (4)
  - HYPOAESTHESIA [None]
  - INJECTION SITE ERYTHEMA [None]
  - INJECTION SITE PAIN [None]
  - INJECTION SITE REACTION [None]
